FAERS Safety Report 24376082 (Version 1)
Quarter: 2024Q3

REPORT INFORMATION
  Report Type: Spontaneous
  Country: US (occurrence: None)
  Receive Date: 20240927
  Receipt Date: 20240927
  Transmission Date: 20241017
  Serious: No
  Sender: Public
  Company Number: None

PATIENT
  Age: 13 Year
  Sex: Male
  Weight: 37.65 kg

DRUGS (2)
  1. COSENTYX [Suspect]
     Active Substance: SECUKINUMAB
     Indication: Migraine
     Dosage: INJECTE 75MG (1 SYRINGE) SUBCUTANEOUSLY EVERY  WEEK FOR 5 WEEKS AS DIRECTED
     Dates: start: 202408
  2. CIBINQO [Suspect]
     Active Substance: ABROCITINIB

REACTIONS (1)
  - Skin infection [None]
